FAERS Safety Report 8251647-6 (Version None)
Quarter: 2012Q2

REPORT INFORMATION
  Report Type: 
  Country: None (occurrence: None)
  Receive Date: 20120402
  Receipt Date: 20120102
  Transmission Date: 20120825
  Serious: No
  Sender: FDA-Public Use
  Company Number: US-ABBOTT-12P-163-0889070-00

PATIENT
  Sex: Male
  Weight: 74.91 kg

DRUGS (1)
  1. ANDROGEL [Suspect]
     Indication: BLOOD TESTOSTERONE DECREASED
     Route: 061
     Dates: start: 20111001

REACTIONS (3)
  - MYALGIA [None]
  - BURNING SENSATION [None]
  - NEURALGIA [None]
